FAERS Safety Report 10568643 (Version 3)
Quarter: 2014Q4

REPORT INFORMATION
  Report Type: Report from Study
  Country: BR (occurrence: BR)
  Receive Date: 20141106
  Receipt Date: 20141205
  Transmission Date: 20150529
  Serious: Yes (Hospitalization, Other)
  Sender: FDA-Public Use
  Company Number: BR-ABBVIE-14K-020-1303279-00

PATIENT
  Age: 19 Year
  Sex: Female
  Weight: 43 kg

DRUGS (2)
  1. HUMIRA [Suspect]
     Active Substance: ADALIMUMAB
     Indication: CROHN^S DISEASE
     Dosage: UNSPECIFIED INDUCTION DOSE
     Route: 058
     Dates: start: 201405, end: 201405
  2. HUMIRA [Suspect]
     Active Substance: ADALIMUMAB
     Route: 058
     Dates: start: 2014, end: 20141018

REACTIONS (13)
  - Oral mucosal discolouration [Recovering/Resolving]
  - Intestinal fistula [Not Recovered/Not Resolved]
  - Intestinal resection [Unknown]
  - Abdominal wound dehiscence [Recovering/Resolving]
  - Infection [Unknown]
  - Pain [Recovering/Resolving]
  - Gastrointestinal inflammation [Unknown]
  - Weight decreased [Unknown]
  - Pyrexia [Not Recovered/Not Resolved]
  - Procedural haemorrhage [Unknown]
  - Wound haemorrhage [Recovering/Resolving]
  - Gastric disorder [Unknown]
  - Purulent discharge [Recovering/Resolving]

NARRATIVE: CASE EVENT DATE: 2014
